FAERS Safety Report 5843287-0 (Version None)
Quarter: 2008Q3

REPORT INFORMATION
  Report Type: 
  Country: None (occurrence: None)
  Receive Date: 20080813
  Receipt Date: 20080624
  Transmission Date: 20090109
  Serious: No
  Sender: FDA-Public Use
  Company Number: US-BAYER-200812845BCC

PATIENT
  Age: 38 Year
  Sex: Female
  Weight: 100 kg

DRUGS (5)
  1. ALEVE [Suspect]
     Indication: ROTATOR CUFF SYNDROME
     Dosage: TOTAL DAILY DOSE: 440 MG  UNIT DOSE: 220 MG
     Route: 048
     Dates: start: 20080619, end: 20080623
  2. NORVIR [Concomitant]
     Route: 065
  3. REYATAZ [Concomitant]
     Route: 065
  4. TRUVADA [Concomitant]
     Route: 065
  5. TRIAMTERENE [Concomitant]

REACTIONS (6)
  - AGEUSIA [None]
  - FATIGUE [None]
  - FEELING DRUNK [None]
  - HYPOAESTHESIA [None]
  - NAUSEA [None]
  - TREMOR [None]
